FAERS Safety Report 9796317 (Version 1)
Quarter: 2014Q1

REPORT INFORMATION
  Report Type: Report from Study
  Country: BD (occurrence: BD)
  Receive Date: 20140103
  Receipt Date: 20140103
  Transmission Date: 20141002
  Serious: Yes (Death, Hospitalization)
  Sender: FDA-Public Use
  Company Number: PHHY2014BD000464

PATIENT
  Age: 89 Year
  Sex: Male

DRUGS (1)
  1. EXELON PATCH [Suspect]
     Indication: DEMENTIA
     Dosage: UNK UKN, UNK
     Route: 062
     Dates: start: 201110, end: 201306

REACTIONS (4)
  - Asthenia [Fatal]
  - Cardiac disorder [Unknown]
  - Diabetes mellitus [Unknown]
  - Renal failure [Unknown]
